FAERS Safety Report 24234287 (Version 1)
Quarter: 2024Q3

REPORT INFORMATION
  Report Type: Spontaneous
  Country: US (occurrence: None)
  Receive Date: 20240820
  Receipt Date: 20240820
  Transmission Date: 20241017
  Serious: Yes (Hospitalization, Other)
  Sender: Public
  Company Number: None

PATIENT
  Age: 79 Year
  Sex: Female
  Weight: 49.5 kg

DRUGS (5)
  1. PROPAFENONE HYDROCHLORIDE [Suspect]
     Active Substance: PROPAFENONE HYDROCHLORIDE
     Indication: Atrial fibrillation
     Dosage: OTHER QUANTITY : 1 CAPSULE(S);?FREQUENCY : TWICE A DAY;?
     Route: 048
     Dates: start: 20240801, end: 20240812
  2. APIXABAN [Concomitant]
     Active Substance: APIXABAN
  3. VITAMINS [Concomitant]
     Active Substance: VITAMINS
  4. HERBALS\TURMERIC [Concomitant]
     Active Substance: HERBALS\TURMERIC
  5. VITAMIN D3 [Concomitant]
     Active Substance: CHOLECALCIFEROL

REACTIONS (9)
  - Motor dysfunction [None]
  - Gait disturbance [None]
  - Weight abnormal [None]
  - Fall [None]
  - Skin laceration [None]
  - Skin laceration [None]
  - Skin laceration [None]
  - Femur fracture [None]
  - Stress cardiomyopathy [None]

NARRATIVE: CASE EVENT DATE: 20240810
